FAERS Safety Report 12082576 (Version 1)
Quarter: 2016Q1

REPORT INFORMATION
  Report Type: Report from Study
  Country: US (occurrence: US)
  Receive Date: 20160217
  Receipt Date: 20160217
  Transmission Date: 20160526
  Serious: Yes (Other)
  Sender: FDA-Public Use
  Company Number: US-AMGEN-USASL2016018695

PATIENT
  Age: 58 Year
  Sex: Female

DRUGS (1)
  1. ENBREL [Suspect]
     Active Substance: ETANERCEPT
     Indication: PSORIATIC ARTHROPATHY
     Dosage: UNK
     Route: 065
     Dates: start: 2014

REACTIONS (8)
  - Bone swelling [Unknown]
  - Swelling [Unknown]
  - Osteoarthritis [Unknown]
  - Ostectomy [Unknown]
  - Vitreous floaters [Unknown]
  - Malaise [Unknown]
  - Eye swelling [Unknown]
  - Back disorder [Unknown]
